FAERS Safety Report 25702277 (Version 2)
Quarter: 2025Q4

REPORT INFORMATION
  Report Type: Spontaneous
  Country: US (occurrence: US)
  Receive Date: 20250819
  Receipt Date: 20251103
  Transmission Date: 20260118
  Serious: No
  Sender: BRISTOL-MYERS SQUIBB COMPANY
  Company Number: US-BRISTOL-MYERS SQUIBB COMPANY-2025-115200

PATIENT
  Age: 73 Year
  Sex: Female
  Weight: 97.98 kg

DRUGS (1)
  1. REVLIMID [Suspect]
     Active Substance: LENALIDOMIDE
     Indication: Plasma cell myeloma
     Dosage: ONCE DAILY FOR 2 WEEKS ON, 1 OFF
     Route: 048

REACTIONS (2)
  - Musculoskeletal chest pain [Recovering/Resolving]
  - Bone disorder [Not Recovered/Not Resolved]
